APPROVED DRUG PRODUCT: GABAPENTIN
Active Ingredient: GABAPENTIN
Strength: 600MG
Dosage Form/Route: TABLET;ORAL
Application: A077661 | Product #004 | TE Code: AB1
Applicant: RUBICON RESEARCH LTD
Approved: Sep 13, 2006 | RLD: No | RS: No | Type: RX